FAERS Safety Report 12604342 (Version 3)
Quarter: 2018Q2

REPORT INFORMATION
  Report Type: Spontaneous
  Country: US (occurrence: US)
  Receive Date: 20160728
  Receipt Date: 20180413
  Transmission Date: 20180711
  Serious: Yes (Hospitalization, Disabling, Other)
  Sender: FDA-Public Use
  Company Number: US-ENDO PHARMACEUTICALS INC.-2016-002880

PATIENT
  Age: 43 Year
  Sex: Male
  Weight: 90.8 kg

DRUGS (4)
  1. TESTOPEL [Suspect]
     Active Substance: TESTOSTERONE
     Indication: ANDROGEN REPLACEMENT THERAPY
     Dosage: UNK UNKNOWN, EVERY 6 MONTHS
     Route: 058
     Dates: start: 20120203, end: 20130210
  2. ANDROGEL [Suspect]
     Active Substance: TESTOSTERONE
     Indication: ANDROGEN REPLACEMENT THERAPY
     Dosage: UNK UNKNOWN, DAILY (1.62%)
     Route: 065
     Dates: start: 20111206, end: 20120203
  3. OMEPRAZOLE. [Concomitant]
     Active Substance: OMEPRAZOLE
     Indication: GASTROOESOPHAGEAL REFLUX DISEASE
     Dosage: UNK UNKNOWN, UNKNOWN
     Route: 065
     Dates: start: 20130104, end: 20130804
  4. PRAVASTATIN. [Concomitant]
     Active Substance: PRAVASTATIN
     Indication: BLOOD CHOLESTEROL INCREASED
     Dosage: UNK UNKNOWN, UNKNOWN
     Route: 065
     Dates: start: 20110608, end: 20130619

REACTIONS (4)
  - Coronary artery disease [Unknown]
  - Arteriosclerosis coronary artery [Unknown]
  - Cardiac disorder [Unknown]
  - Acute myocardial infarction [Not Recovered/Not Resolved]

NARRATIVE: CASE EVENT DATE: 2013
